FAERS Safety Report 7341668-X (Version None)
Quarter: 2011Q1

REPORT INFORMATION
  Report Type: 
  Country: None (occurrence: None)
  Receive Date: 20110309
  Receipt Date: 20110303
  Transmission Date: 20110831
  Serious: Yes (Hospitalization)
  Sender: FDA-Public Use
  Company Number: US-PFIZER INC-2011030742

PATIENT
  Sex: Female
  Weight: 53.515 kg

DRUGS (4)
  1. FLONASE [Concomitant]
     Dosage: UNK
  2. NORVASC [Suspect]
     Indication: HYPERTENSION
     Dosage: 5 MG, 1X/DAY
     Route: 048
     Dates: start: 20061201, end: 20100107
  3. NORVASC [Suspect]
     Dosage: 10 MG, 1X/DAY
     Route: 048
     Dates: start: 20100108, end: 20100101
  4. NORVASC [Suspect]
     Dosage: 5 MG, 2X/DAY
     Route: 048
     Dates: start: 20100101

REACTIONS (4)
  - COUGH [None]
  - FALL [None]
  - PRODUCT SOLUBILITY ABNORMAL [None]
  - DIZZINESS [None]
